FAERS Safety Report 4742892-2 (Version None)
Quarter: 2005Q3

REPORT INFORMATION
  Report Type: 
  Country: None (occurrence: None)
  Receive Date: 20050811
  Receipt Date: 20050625
  Transmission Date: 20060218
  Serious: Yes (Death, Hospitalization, Other)
  Sender: FDA-Public Use
  Company Number: PHNU2005DE02388

PATIENT
  Age: 31 Year
  Sex: Male
  Weight: 95 kg

DRUGS (2)
  1. CLOZARIL [Suspect]
     Indication: SCHIZOPHRENIA, CATATONIC TYPE
     Dosage: ALTERNATING BETWEEN 250 AND 400 MG/DAY
     Route: 048
     Dates: start: 19930101, end: 20050622
  2. TAVOR [Concomitant]
     Route: 048

REACTIONS (11)
  - ACUTE ABDOMEN [None]
  - BLOOD POTASSIUM INCREASED [None]
  - FLATULENCE [None]
  - GASTROINTESTINAL NECROSIS [None]
  - GENERAL PHYSICAL HEALTH DETERIORATION [None]
  - HAEMOGLOBIN INCREASED [None]
  - INTUBATION [None]
  - LAPAROTOMY [None]
  - LEUKOCYTOSIS [None]
  - SUBILEUS [None]
  - THROMBOSIS [None]
